FAERS Safety Report 4873833-5 (Version None)
Quarter: 2006Q1

REPORT INFORMATION
  Report Type: 
  Country: None (occurrence: None)
  Receive Date: 20060104
  Receipt Date: 20051220
  Transmission Date: 20060701
  Serious: Yes (Other)
  Sender: FDA-Public Use
  Company Number: 006338

PATIENT
  Sex: Female

DRUGS (4)
  1. MEDROXYPROGESTERONE [Suspect]
     Dates: start: 19940101, end: 19950101
  2. PREMARIN [Suspect]
     Dates: start: 19940101, end: 19950101
  3. PROVERA [Suspect]
     Dates: start: 19940101, end: 19950101
  4. PREMPRO [Suspect]
     Dates: start: 19950101, end: 19990101

REACTIONS (1)
  - BREAST CANCER FEMALE [None]
